FAERS Safety Report 15786151 (Version 1)
Quarter: 2020Q3

REPORT INFORMATION
  Report Type: Spontaneous
  Country: ES (occurrence: ES)
  Receive Date: 20190103
  Receipt Date: 20190103
  Transmission Date: 20201104
  Serious: Yes (Other)
  Sender: FDA-Public Use
  Company Number: IND-ES-009507513-1812ESP012070

PATIENT
  Age: 83 Year
  Sex: Male

DRUGS (1)
  1. ETORICOXIB. [Suspect]
     Active Substance: ETORICOXIB
     Indication: ARTHRITIS ALLERGIC
     Dosage: 1 TABLET EVERY 24 HOURS
     Route: 048
     Dates: start: 20181113, end: 20181204

REACTIONS (2)
  - Atrial fibrillation [Recovered/Resolved]
  - Cardiac failure acute [Recovering/Resolving]

NARRATIVE: CASE EVENT DATE: 20181127
